APPROVED DRUG PRODUCT: METHYLPHENIDATE HYDROCHLORIDE
Active Ingredient: METHYLPHENIDATE HYDROCHLORIDE
Strength: 10MG
Dosage Form/Route: TABLET;ORAL
Application: A209753 | Product #002 | TE Code: AB
Applicant: BIONPHARMA INC
Approved: Mar 2, 2018 | RLD: No | RS: No | Type: RX